FAERS Safety Report 18442304 (Version 3)
Quarter: 2021Q1

REPORT INFORMATION
  Report Type: Report from Study
  Country: RU (occurrence: RU)
  Receive Date: 20201029
  Receipt Date: 20210105
  Transmission Date: 20210419
  Serious: Yes (Other)
  Sender: FDA-Public Use
  Company Number: RU-INCYTE CORPORATION-2020IN010701

PATIENT

DRUGS (1)
  1. JAKAVI [Suspect]
     Active Substance: RUXOLITINIB
     Indication: POLYCYTHAEMIA VERA
     Dosage: 15 MG, BID
     Route: 065
     Dates: start: 20200605

REACTIONS (13)
  - Pain in extremity [Unknown]
  - Somnolence [Recovered/Resolved]
  - Blood lactate dehydrogenase increased [Unknown]
  - Splenomegaly [Unknown]
  - Thrombocytosis [Unknown]
  - Venous recanalisation [Recovered/Resolved]
  - Asthenia [Recovered/Resolved]
  - Haematocrit increased [Unknown]
  - Post thrombotic syndrome [Recovered/Resolved]
  - White blood cell count increased [Recovering/Resolving]
  - Deep vein thrombosis [Recovered/Resolved]
  - Groin pain [Unknown]
  - Arthralgia [Recovered/Resolved]

NARRATIVE: CASE EVENT DATE: 20200608
